FAERS Safety Report 21199647 (Version 1)
Quarter: 2022Q3

REPORT INFORMATION
  Report Type: Spontaneous
  Country: GB (occurrence: GB)
  Receive Date: 20220811
  Receipt Date: 20220811
  Transmission Date: 20221027
  Serious: Yes (Disabling, Other)
  Sender: FDA-Public Use
  Company Number: GB-NOVOPROD-932954

PATIENT
  Age: 42 Year
  Sex: Female
  Weight: 116 kg

DRUGS (1)
  1. SAXENDA [Suspect]
     Active Substance: LIRAGLUTIDE
     Indication: Product used for unknown indication
     Dosage: 0.6 MG (TITRATION)
     Route: 058
     Dates: start: 20220606, end: 20220610

REACTIONS (9)
  - Joint effusion [Recovering/Resolving]
  - Eye infection [Recovering/Resolving]
  - Mass [Recovering/Resolving]
  - Arthralgia [Recovering/Resolving]
  - Back pain [Recovering/Resolving]
  - Arthralgia [Recovering/Resolving]
  - Diarrhoea [Recovering/Resolving]
  - Urticaria [Recovering/Resolving]
  - Arthritis reactive [Recovering/Resolving]

NARRATIVE: CASE EVENT DATE: 20220601
